FAERS Safety Report 5085908-9 (Version None)
Quarter: 2006Q3

REPORT INFORMATION
  Report Type: 
  Country: None (occurrence: None)
  Receive Date: 20060817
  Receipt Date: 20060804
  Transmission Date: 20061208
  Serious: Yes (Hospitalization)
  Sender: FDA-Public Use
  Company Number: 2006096791

PATIENT
  Age: 75 Year
  Sex: Male

DRUGS (3)
  1. SUTENT [Suspect]
     Indication: METASTATIC RENAL CELL CARCINOMA
     Dosage: 37.5 MG (37.5 MG, INTERVAL:  EVERY DAY FOR 28 DAYS), ORAL
     Route: 048
     Dates: start: 20060713
  2. SENOKOT [Concomitant]
  3. HYDROMORPHONE HCL [Concomitant]

REACTIONS (2)
  - DYSARTHRIA [None]
  - HEMIPARESIS [None]
